FAERS Safety Report 20016848 (Version 1)
Quarter: 2021Q4

REPORT INFORMATION
  Report Type: Spontaneous
  Country: US (occurrence: None)
  Receive Date: 20211105
  Receipt Date: 20211105
  Transmission Date: 20220303
  Serious: No
  Sender: FDA-Public Use
  Company Number: None

PATIENT
  Age: 70 Year
  Sex: Male

DRUGS (1)
  1. TISAGENLECLEUCEL [Suspect]
     Active Substance: TISAGENLECLEUCEL

REACTIONS (10)
  - Cytokine release syndrome [None]
  - Confusional state [None]
  - Febrile neutropenia [None]
  - Somnolence [None]
  - Headache [None]
  - Anxiety [None]
  - Agitation [None]
  - Tremor [None]
  - Aphasia [None]
  - Disorientation [None]
